FAERS Safety Report 8007735-2 (Version None)
Quarter: 2011Q4

REPORT INFORMATION
  Report Type: 
  Country: None (occurrence: None)
  Receive Date: 20111222
  Receipt Date: 20111222
  Transmission Date: 20120403
  Serious: No
  Sender: FDA-Public Use
  Company Number: None

PATIENT
  Age: 45 Year
  Sex: Female

DRUGS (1)
  1. LIDOCAINE [Suspect]
     Dosage: INFILTRATION
     Dates: start: 20111221

REACTIONS (1)
  - DRUG INEFFECTIVE [None]
